FAERS Safety Report 5995305-7 (Version None)
Quarter: 2008Q4

REPORT INFORMATION
  Report Type: 
  Country: None (occurrence: None)
  Receive Date: 20081212
  Receipt Date: 20080926
  Transmission Date: 20090506
  Serious: No
  Sender: FDA-Public Use
  Company Number: US-ABBOTT-08P-163-0478446-00

PATIENT
  Sex: Female

DRUGS (2)
  1. HUMIRA [Suspect]
     Indication: RHEUMATOID ARTHRITIS
     Route: 058
     Dates: start: 20050901
  2. DIPHENHYDRAMINE HYDROCHLORIDE [Concomitant]
     Indication: RASH

REACTIONS (4)
  - BACK PAIN [None]
  - RASH [None]
  - RHEUMATOID ARTHRITIS [None]
  - SCOLIOSIS [None]
